FAERS Safety Report 8953065 (Version 1)
Quarter: 2012Q4

REPORT INFORMATION
  Report Type: 
  Country: DE (occurrence: DE)
  Receive Date: 20121205
  Receipt Date: 20121205
  Transmission Date: 20130627
  Serious: Yes (Congenital Anomaly)
  Sender: FDA-Public Use
  Company Number: DE-TEVA-372041GER

PATIENT
  Age: 0 Year
  Sex: Female

DRUGS (2)
  1. CITALOPRAM [Suspect]
     Route: 064
  2. IBUPROFEN [Concomitant]
     Route: 064

REACTIONS (1)
  - Double outlet right ventricle [Recovered/Resolved with Sequelae]
